FAERS Safety Report 7480635-2 (Version None)
Quarter: 2011Q2

REPORT INFORMATION
  Report Type: 
  Country: None (occurrence: None)
  Receive Date: 20110512
  Receipt Date: 20110512
  Transmission Date: 20111010
  Serious: No
  Sender: FDA-Public Use
  Company Number: None

PATIENT
  Age: 57 Year
  Sex: Female
  Weight: 49.4421 kg

DRUGS (1)
  1. ALENDRONATE SODIUM [Suspect]
     Indication: OSTEOPENIA
     Dosage: 1 TABLET WEEKLY PO
     Route: 048
     Dates: start: 20110426, end: 20110503

REACTIONS (3)
  - MYALGIA [None]
  - WEIGHT BEARING DIFFICULTY [None]
  - MUSCLE SPASMS [None]
